FAERS Safety Report 7377345-9 (Version None)
Quarter: 2011Q1

REPORT INFORMATION
  Report Type: 
  Country: None (occurrence: None)
  Receive Date: 20110328
  Receipt Date: 20110318
  Transmission Date: 20110831
  Serious: Yes (Other)
  Sender: FDA-Public Use
  Company Number: IT-ASTELLAS-2011EU001485

PATIENT
  Age: 11 Year
  Sex: Male

DRUGS (2)
  1. TACROLIMUS [Suspect]
     Indication: LIVER TRANSPLANT
     Dosage: UNK
     Route: 065
  2. PREDNISOLONE [Concomitant]
     Indication: LIVER TRANSPLANT
     Dosage: 1 MG, UNKNOWN/D
     Route: 065

REACTIONS (2)
  - POST STREPTOCOCCAL GLOMERULONEPHRITIS [None]
  - GLOMERULONEPHRITIS MEMBRANOPROLIFERATIVE [None]
